FAERS Safety Report 21578077 (Version 2)
Quarter: 2022Q4

REPORT INFORMATION
  Report Type: Spontaneous
  Country: JP (occurrence: JP)
  Receive Date: 20221110
  Receipt Date: 20221114
  Transmission Date: 20230113
  Serious: Yes (Death, Hospitalization)
  Sender: FDA-Public Use
  Company Number: JP-MSD-2210JPN004244J

PATIENT
  Age: 66 Year
  Sex: Female
  Weight: 64 kg

DRUGS (14)
  1. KEYTRUDA [Suspect]
     Active Substance: PEMBROLIZUMAB
     Indication: Ear neoplasm malignant
     Dosage: 200 MILLIGRAM
     Route: 041
     Dates: start: 20220531, end: 20220913
  2. ERBITUX [Suspect]
     Active Substance: CETUXIMAB
     Indication: Ear neoplasm malignant
     Dosage: 670 MILLIGRAM
     Route: 041
     Dates: start: 20221005, end: 20221005
  3. ERBITUX [Suspect]
     Active Substance: CETUXIMAB
     Dosage: 420 MILLIGRAM
     Route: 041
     Dates: start: 20221012, end: 20221012
  4. PACLITAXEL [Suspect]
     Active Substance: PACLITAXEL
     Indication: Ear neoplasm malignant
     Dosage: 130 MILLIGRAM
     Route: 041
     Dates: start: 20221005, end: 20221012
  5. CARBOPLATIN [Suspect]
     Active Substance: CARBOPLATIN
     Dosage: UNK
     Route: 065
     Dates: start: 20220531, end: 20220913
  6. FLUOROURACIL [Suspect]
     Active Substance: FLUOROURACIL
     Dosage: UNK
     Route: 065
     Dates: start: 20220531, end: 20220913
  7. JANUVIA [Concomitant]
     Active Substance: SITAGLIPTIN PHOSPHATE
     Dosage: UNK
     Route: 065
  8. VONOPRAZAN FUMARATE [Concomitant]
     Active Substance: VONOPRAZAN FUMARATE
     Dosage: UNK
     Route: 065
  9. URINORM [BENZBROMARONE] [Concomitant]
     Dosage: UNK
     Route: 065
  10. EZETIMIBE [Concomitant]
     Active Substance: EZETIMIBE
     Dosage: UNK
     Route: 065
  11. MAGNESIUM OXIDE [Concomitant]
     Active Substance: MAGNESIUM OXIDE
     Dosage: UNK
     Route: 065
  12. CALONAL [Concomitant]
     Active Substance: ACETAMINOPHEN
     Indication: Pyrexia
     Dosage: UNK, PRN
     Route: 065
  13. CALONAL [Concomitant]
     Active Substance: ACETAMINOPHEN
     Indication: Pain
  14. CEFDITOREN PIVOXIL [Concomitant]
     Active Substance: CEFDITOREN PIVOXIL
     Dosage: UNK
     Route: 065
     Dates: start: 20221019, end: 20221021

REACTIONS (1)
  - Respiratory failure [Fatal]

NARRATIVE: CASE EVENT DATE: 20221021
